FAERS Safety Report 9828111 (Version 2)
Quarter: 2015Q3

REPORT INFORMATION
  Report Type: Spontaneous
  Country: US (occurrence: US)
  Receive Date: 20140117
  Receipt Date: 20150722
  Transmission Date: 20151125
  Serious: No
  Sender: FDA-Public Use
  Company Number: US-GILEAD-2010-0033116

PATIENT
  Sex: Female

DRUGS (5)
  1. NORVIR [Concomitant]
     Active Substance: RITONAVIR
  2. ATRIPLA [Suspect]
     Active Substance: EFAVIRENZ\EMTRICITABINE\TENOFOVIR DISOPROXIL FUMARATE
     Indication: HIV INFECTION
  3. ISENTRESS [Concomitant]
     Active Substance: RALTEGRAVIR POTASSIUM
  4. REYATAZ [Concomitant]
     Active Substance: ATAZANAVIR SULFATE
  5. SUSTIVA [Concomitant]
     Active Substance: EFAVIRENZ

REACTIONS (3)
  - Dyspnoea [Unknown]
  - Blood lactic acid increased [Unknown]
  - Blood pressure decreased [Unknown]
